FAERS Safety Report 21929878 (Version 1)
Quarter: 2023Q1

REPORT INFORMATION
  Report Type: Spontaneous
  Country: CA (occurrence: CA)
  Receive Date: 20230131
  Receipt Date: 20230131
  Transmission Date: 20230418
  Serious: Yes (Death)
  Sender: FDA-Public Use
  Company Number: CA-ORGANON-O2301CAN002549

PATIENT
  Age: 77 Year
  Sex: Female
  Weight: 52 kg

DRUGS (13)
  1. REMERON [Suspect]
     Active Substance: MIRTAZAPINE
     Dosage: 45 MILLIGRAM, 1 EVERY 1 DAY
     Route: 048
  2. BUPROPION [Suspect]
     Active Substance: BUPROPION
     Dosage: 300 MILLIGRAM, 1 EVERY 1 DAYS
     Route: 048
  3. CODEINE [Suspect]
     Active Substance: CODEINE
     Dosage: UNK
     Route: 048
  4. DIPHENHYDRAMINE [Suspect]
     Active Substance: DIPHENHYDRAMINE
     Dosage: UNK, DOSAGE FORM : NOT SPECIFIED
     Route: 065
  5. FENTANYL [Suspect]
     Active Substance: FENTANYL
     Dosage: 1 DOSAGE FORM, DOSAGE FORM: PATCH
     Route: 023
  6. GABAPENTIN [Suspect]
     Active Substance: GABAPENTIN
     Dosage: 100 MILLIGRAM, DOSAGE FORM: NOT SPECIFIED
     Route: 048
  7. LORAZEPAM [Suspect]
     Active Substance: LORAZEPAM
     Dosage: UNK,  DOSAGE FORM: NOT SPECIFIED
     Route: 048
  8. ACETAMINOPHEN [Concomitant]
     Active Substance: ACETAMINOPHEN
     Dosage: UNK, DOSAGE FORM : NOT SPECIFIED
     Route: 065
  9. ATORVASTATIN [Concomitant]
     Active Substance: ATORVASTATIN
     Route: 065
  10. ESOMEPRAZOLE [Concomitant]
     Active Substance: ESOMEPRAZOLE
     Dosage: UNK DOSAGE FORM:NOT SPECIFIED
     Route: 065
  11. METOPROLOL [Concomitant]
     Active Substance: METOPROLOL
     Dosage: UNK,  DOSAGE FORM: NOT SPECIFIED
     Route: 065
  12. MORPHINE [Concomitant]
     Active Substance: MORPHINE
     Dosage: UNK DOSAGE FORM:NOT SPECIFIED
     Route: 065
  13. SYNTHROID [Concomitant]
     Active Substance: LEVOTHYROXINE SODIUM
     Dosage: UNK,  DOSAGE FORM: NOT SPECIFIED
     Route: 065

REACTIONS (1)
  - Death [Fatal]
